FAERS Safety Report 10062929 (Version 2)
Quarter: 2014Q4

REPORT INFORMATION
  Report Type: Spontaneous
  Country: US (occurrence: None)
  Receive Date: 20140328
  Receipt Date: 20141002
  Transmission Date: 20150528
  Serious: Yes (Life-Threatening, Hospitalization)
  Sender: FDA-Public Use
  Company Number: PHEH2014US001711

PATIENT
  Age: 70 Year
  Sex: Female
  Weight: 71 kg

DRUGS (1)
  1. AFINITOR [Suspect]
     Active Substance: EVEROLIMUS
     Indication: BREAST CANCER METASTATIC
     Route: 048
     Dates: start: 201309, end: 20131217

REACTIONS (7)
  - Confusional state [None]
  - Lethargy [None]
  - Sepsis [None]
  - Dehydration [None]
  - Urine output decreased [None]
  - Acute kidney injury [None]
  - Urinary tract infection [None]

NARRATIVE: CASE EVENT DATE: 20131217
